FAERS Safety Report 21920235 (Version 1)
Quarter: 2023Q1

REPORT INFORMATION
  Report Type: Spontaneous
  Country: JP (occurrence: None)
  Receive Date: 20230127
  Receipt Date: 20230127
  Transmission Date: 20230418
  Serious: Yes (Other)
  Sender: FDA-Public Use
  Company Number: 2023A019652

PATIENT
  Age: 87 Year
  Sex: Male

DRUGS (2)
  1. LOKELMA [Suspect]
     Active Substance: SODIUM ZIRCONIUM CYCLOSILICATE
     Indication: Hyperkalaemia
     Dosage: DOSE UNKNOWN
     Route: 048
     Dates: start: 20220915, end: 20230118
  2. LOKELMA [Suspect]
     Active Substance: SODIUM ZIRCONIUM CYCLOSILICATE
     Indication: Hyperkalaemia
     Dosage: DOSE UNKNOWN10.0MG UNKNOWN
     Route: 048
     Dates: start: 20230119

REACTIONS (1)
  - Blood potassium increased [Unknown]

NARRATIVE: CASE EVENT DATE: 20221201
